FAERS Safety Report 12197937 (Version 1)
Quarter: 2016Q1

REPORT INFORMATION
  Report Type: Spontaneous
  Country: US (occurrence: None)
  Receive Date: 20160321
  Receipt Date: 20160321
  Transmission Date: 20160526
  Serious: Yes (Other)
  Sender: FDA-Public Use
  Company Number: None

PATIENT
  Age: 63 Year
  Sex: Female
  Weight: 61.24 kg

DRUGS (8)
  1. VITAMIN D [Concomitant]
     Active Substance: CHOLECALCIFEROL
  2. ALLEGRA [Concomitant]
     Active Substance: FEXOFENADINE HYDROCHLORIDE
  3. OPANA ER [Concomitant]
     Active Substance: OXYMORPHONE HYDROCHLORIDE
  4. VALIUM [Concomitant]
     Active Substance: DIAZEPAM
  5. VAGIFEM [Concomitant]
     Active Substance: ESTRADIOL
  6. MULTI VITAMIN [Concomitant]
     Active Substance: VITAMINS
  7. NORVAC [Concomitant]
     Active Substance: AMLODIPINE BESYLATE
  8. HARVONI [Suspect]
     Active Substance: LEDIPASVIR\SOFOSBUVIR
     Indication: HEPATITIS C VIRUS TEST
     Dosage: 1 PILL ONCE DAILY
     Route: 048
     Dates: start: 20160228, end: 20160313

REACTIONS (8)
  - Depression [None]
  - Blood pressure increased [None]
  - Tinnitus [None]
  - Eye disorder [None]
  - Anger [None]
  - Emotional disorder [None]
  - Palpitations [None]
  - Headache [None]

NARRATIVE: CASE EVENT DATE: 20160314
